FAERS Safety Report 8812228 (Version 1)
Quarter: 2012Q4

REPORT INFORMATION
  Report Type: 
  Country: US (occurrence: US)
  Receive Date: 20120927
  Receipt Date: 20120927
  Transmission Date: 20130627
  Serious: No
  Sender: FDA-Public Use
  Company Number: US-ASTRAZENECA-2012SE61186

PATIENT
  Age: 51 Year
  Sex: Female
  Weight: 58.5 kg

DRUGS (11)
  1. NEXIUM [Suspect]
     Indication: ABDOMINAL PAIN UPPER
     Route: 048
     Dates: start: 201206
  2. NEXIUM [Suspect]
     Indication: ABDOMINAL PAIN UPPER
     Route: 048
     Dates: start: 2012
  3. NEXIUM [Suspect]
     Indication: ABDOMINAL PAIN UPPER
     Route: 048
     Dates: start: 2012
  4. NEXIUM [Suspect]
     Indication: ABDOMINAL PAIN UPPER
     Dosage: DURING THE DAY
     Route: 048
  5. NEXIUM [Suspect]
     Indication: ABDOMINAL PAIN UPPER
     Dosage: AT NIGHT BEFORE MEAL
     Route: 048
  6. OMEPRAZOLE [Suspect]
     Indication: GASTRITIS
     Route: 048
  7. OMEPRAZOLE [Suspect]
     Indication: ABDOMINAL PAIN UPPER
     Route: 048
  8. OMEPRAZOLE [Suspect]
     Indication: GASTRITIS
     Route: 048
  9. OMEPRAZOLE [Suspect]
     Indication: ABDOMINAL PAIN UPPER
     Route: 048
  10. VITAMIN D SUPPLEMENT [Concomitant]
  11. CALCIUM VITAMIN SUPPLEMENT [Concomitant]

REACTIONS (7)
  - Condition aggravated [Unknown]
  - Pain [Unknown]
  - Intentional drug misuse [Unknown]
  - Drug effect incomplete [Unknown]
  - Drug ineffective [Unknown]
  - Off label use [Unknown]
  - Off label use [Recovered/Resolved]
